FAERS Safety Report 20989242 (Version 2)
Quarter: 2022Q2

REPORT INFORMATION
  Report Type: Report from Study
  Country: US (occurrence: None)
  Receive Date: 20220621
  Receipt Date: 20220623
  Transmission Date: 20220720
  Serious: Yes (Hospitalization)
  Sender: FDA-Public Use
  Company Number: US-ROCHE-3117000

PATIENT
  Age: 67 Year
  Sex: Male
  Weight: 90.9 kg

DRUGS (17)
  1. CEVOSTAMAB [Suspect]
     Active Substance: CEVOSTAMAB
     Indication: Plasma cell myeloma
     Dosage: ON 21/JAN/2022 THE MOST RECENT DOSE OF  CEVOSTAMAB PRIOR TO SAE 90 MG .
     Route: 042
     Dates: start: 20200217
  2. TOCILIZUMAB [Suspect]
     Active Substance: TOCILIZUMAB
     Indication: Plasma cell myeloma
     Route: 042
     Dates: start: 20200219
  3. DENOSUMAB [Concomitant]
     Active Substance: DENOSUMAB
     Route: 058
     Dates: start: 20190617
  4. FAMCICLOVIR [Concomitant]
     Active Substance: FAMCICLOVIR
     Indication: Herpes zoster
     Route: 048
     Dates: start: 20190725
  5. FENTANYL [Concomitant]
     Active Substance: FENTANYL
     Indication: Musculoskeletal chest pain
     Dosage: 1 OTHER
     Route: 003
     Dates: start: 20190725
  6. LORAZEPAM [Concomitant]
     Active Substance: LORAZEPAM
     Indication: Insomnia
     Route: 048
     Dates: start: 20200124
  7. LOSARTAN [Concomitant]
     Active Substance: LOSARTAN
     Indication: Hypertension
     Route: 048
     Dates: start: 20190617
  8. OXYCODONE [Concomitant]
     Active Substance: OXYCODONE
     Indication: Musculoskeletal chest pain
     Route: 048
     Dates: start: 20200124
  9. TEMAZEPAM [Concomitant]
     Active Substance: TEMAZEPAM
     Indication: Insomnia
     Route: 048
     Dates: start: 20200124
  10. FLUCONAZOLE [Concomitant]
     Active Substance: FLUCONAZOLE
     Indication: Dysphonia
     Route: 065
  11. PREVNAR 13 [Concomitant]
     Active Substance: PNEUMOCOCCAL 13-VALENT CONJUGATE VACCINE
     Route: 065
     Dates: start: 20201029, end: 20201029
  12. DEXAMETHASONE [Concomitant]
     Active Substance: DEXAMETHASONE
     Indication: Neoplasm malignant
  13. VELCADE [Concomitant]
     Active Substance: BORTEZOMIB
     Indication: Neoplasm malignant
  14. MELPHALAN [Concomitant]
     Active Substance: MELPHALAN
     Indication: Neoplasm malignant
     Dates: start: 20101008
  15. REVLIMID [Concomitant]
     Active Substance: LENALIDOMIDE
     Indication: Neoplasm malignant
  16. CARFILZOMIB [Concomitant]
     Active Substance: CARFILZOMIB
     Indication: Neoplasm malignant
  17. POMALYST [Concomitant]
     Active Substance: POMALIDOMIDE
     Indication: Neoplasm malignant

REACTIONS (1)
  - Transitional cell carcinoma [Not Recovered/Not Resolved]

NARRATIVE: CASE EVENT DATE: 20201110
